FAERS Safety Report 7322145-9 (Version None)
Quarter: 2011Q1

REPORT INFORMATION
  Report Type: 
  Country: None (occurrence: None)
  Receive Date: 20110228
  Receipt Date: 20110225
  Transmission Date: 20110831
  Serious: Yes (Hospitalization)
  Sender: FDA-Public Use
  Company Number: DK-ABBOTT-10P-044-0652219-00

PATIENT
  Sex: Male
  Weight: 80 kg

DRUGS (1)
  1. SIBUTRAMINE HYDROCHLORIDE MONOHYDRATE [Suspect]
     Indication: OBESITY
     Route: 048
     Dates: start: 20090601, end: 20090901

REACTIONS (3)
  - CEREBROVASCULAR SPASM [None]
  - INFARCTION [None]
  - CEREBROVASCULAR ACCIDENT [None]
